FAERS Safety Report 17806315 (Version 1)
Quarter: 2020Q2

REPORT INFORMATION
  Report Type: Spontaneous
  Country: US (occurrence: US)
  Receive Date: 20200520
  Receipt Date: 20200520
  Transmission Date: 20200714
  Serious: Yes (Other)
  Sender: FDA-Public Use
  Company Number: US-BAYER-2020-083515

PATIENT
  Age: 73 Year
  Sex: Male

DRUGS (1)
  1. MIRALAX [Suspect]
     Active Substance: POLYETHYLENE GLYCOL 3350
     Indication: GASTROINTESTINAL DISORDER
     Dosage: 1 DF
     Route: 048
     Dates: start: 20200509, end: 20200509

REACTIONS (6)
  - Flatulence [Recovered/Resolved]
  - Urinary tract discomfort [Recovered/Resolved]
  - Abdominal pain [Recovered/Resolved]
  - Urinary retention [Recovered/Resolved]
  - Diarrhoea [Recovered/Resolved]
  - Prostatic disorder [Recovered/Resolved]

NARRATIVE: CASE EVENT DATE: 20200509
